FAERS Safety Report 13905668 (Version 2)
Quarter: 2017Q4

REPORT INFORMATION
  Report Type: Spontaneous
  Country: GB (occurrence: GB)
  Receive Date: 20170825
  Receipt Date: 20171009
  Transmission Date: 20180320
  Serious: Yes (Other)
  Sender: FDA-Public Use
  Company Number: GB-TEVA-798985ACC

PATIENT
  Age: 19 Year
  Sex: Female
  Weight: 54.42 kg

DRUGS (1)
  1. FLUCONAZOLE. [Suspect]
     Active Substance: FLUCONAZOLE
     Indication: VULVOVAGINAL CANDIDIASIS
     Route: 048
     Dates: start: 20060701, end: 20060901

REACTIONS (6)
  - Rash [Recovered/Resolved]
  - Oral mucosal blistering [Recovered/Resolved]
  - Swelling face [Recovered/Resolved]
  - Hypersensitivity [Recovered/Resolved]
  - Reaction to excipient [Unknown]
  - Product substitution issue [Unknown]

NARRATIVE: CASE EVENT DATE: 20060701
